FAERS Safety Report 6748017-6 (Version None)
Quarter: 2010Q2

REPORT INFORMATION
  Report Type: 
  Country: None (occurrence: None)
  Receive Date: 20100530
  Receipt Date: 20100524
  Transmission Date: 20101027
  Serious: Yes (Other)
  Sender: FDA-Public Use
  Company Number: US-BRISTOL-MYERS SQUIBB COMPANY-15037013

PATIENT
  Sex: Female

DRUGS (3)
  1. ONGLYZA [Suspect]
  2. METFORMIN HCL [Suspect]
  3. INSULIN [Concomitant]

REACTIONS (1)
  - HEPATIC ENZYME INCREASED [None]
